FAERS Safety Report 8227621-2 (Version None)
Quarter: 2012Q1

REPORT INFORMATION
  Report Type: 
  Country: None (occurrence: None)
  Receive Date: 20120322
  Receipt Date: 20120316
  Transmission Date: 20120608
  Serious: Yes (Death, Other)
  Sender: FDA-Public Use
  Company Number: US-ROXANE LABORATORIES, INC.-2010-RO-00929RO

PATIENT
  Age: 51 Year
  Sex: Female
  Weight: 114 kg

DRUGS (10)
  1. METHADONE HCL [Suspect]
  2. ZANTREX [Suspect]
  3. IBUPROFEN [Suspect]
  4. GABAPENTIN [Suspect]
  5. OXYCODONE HCL [Suspect]
  6. VENLAFAXINE [Suspect]
  7. LORAZEPAM [Suspect]
  8. BUPROPION HCL [Suspect]
  9. NYQUIL [Suspect]
     Indication: INFLUENZA LIKE ILLNESS
  10. METHADONE HCL [Suspect]
     Dosage: 720 MG

REACTIONS (4)
  - LOBAR PNEUMONIA [None]
  - INFLUENZA LIKE ILLNESS [None]
  - PNEUMONIA PNEUMOCOCCAL [None]
  - UNRESPONSIVE TO STIMULI [None]
